FAERS Safety Report 15795420 (Version 1)
Quarter: 2019Q1

REPORT INFORMATION
  Report Type: Spontaneous
  Country: US (occurrence: US)
  Receive Date: 20190107
  Receipt Date: 20190107
  Transmission Date: 20190417
  Serious: Yes (Other)
  Sender: FDA-Public Use
  Company Number: US-BAYER-2019-005258

PATIENT

DRUGS (3)
  1. ALIQOPA [Suspect]
     Active Substance: COPANLISIB
     Dosage: 60 MG WKLY X3 Q 28D
  2. NEUPOGEN [Concomitant]
     Active Substance: FILGRASTIM
  3. ALIQOPA [Suspect]
     Active Substance: COPANLISIB
     Dosage: 45 MG WKLY X3 Q 28D

REACTIONS (1)
  - Neutropenia [None]
